FAERS Safety Report 7450948-9 (Version None)
Quarter: 2011Q2

REPORT INFORMATION
  Report Type: 
  Country: None (occurrence: None)
  Receive Date: 20110429
  Receipt Date: 20110429
  Transmission Date: 20111010
  Serious: No
  Sender: FDA-Public Use
  Company Number: None

PATIENT
  Age: 29 Year
  Sex: Female
  Weight: 58.514 kg

DRUGS (1)
  1. LEXAPRO [Suspect]
     Indication: DEPRESSION
     Dosage: 20MG 1X PER DAY PO
     Route: 048
     Dates: start: 20100101, end: 20110401

REACTIONS (2)
  - TREATMENT FAILURE [None]
  - COLITIS ULCERATIVE [None]
